FAERS Safety Report 12491709 (Version 1)
Quarter: 2016Q2

REPORT INFORMATION
  Report Type: Spontaneous
  Country: US (occurrence: None)
  Receive Date: 20160622
  Receipt Date: 20160622
  Transmission Date: 20160815
  Serious: Yes (Hospitalization)
  Sender: FDA-Public Use
  Company Number: None

PATIENT
  Age: 41 Year
  Sex: Female
  Weight: 108.86 kg

DRUGS (1)
  1. LISINOPRIL. [Suspect]
     Active Substance: LISINOPRIL
     Indication: BLOOD PRESSURE MEASUREMENT

REACTIONS (7)
  - Eye haemorrhage [None]
  - Nausea [None]
  - Micturition urgency [None]
  - Dyspnoea [None]
  - Abdominal pain upper [None]
  - Vomiting [None]
  - Cough [None]

NARRATIVE: CASE EVENT DATE: 20140413
